FAERS Safety Report 7756037-8 (Version None)
Quarter: 2011Q3

REPORT INFORMATION
  Report Type: 
  Country: None (occurrence: None)
  Receive Date: 20110908
  Receipt Date: 20110902
  Transmission Date: 20111222
  Serious: Yes (Other)
  Sender: FDA-Public Use
  Company Number: 2011028658

PATIENT
  Age: 71 Year
  Sex: Female
  Weight: 76.2043 kg

DRUGS (23)
  1. HIZENTRA [Suspect]
  2. SINGULAIR [Concomitant]
  3. TICLID [Concomitant]
  4. LISINOPRIL [Concomitant]
  5. ZANTAC [Concomitant]
  6. IPRATROPIUM BROMIDE [Concomitant]
  7. SIMVASTATIN [Concomitant]
  8. HIZENTRA [Suspect]
     Indication: IMMUNODEFICIENCY COMMON VARIABLE
     Dosage: SEE IMAGE
     Route: 058
     Dates: start: 20110801
  9. HIZENTRA [Suspect]
     Indication: IMMUNODEFICIENCY COMMON VARIABLE
     Dosage: SEE IMAGE
     Route: 058
     Dates: start: 20110223
  10. HIZENTRA [Suspect]
     Indication: IMMUNODEFICIENCY COMMON VARIABLE
     Dosage: SEE IMAGE
     Route: 058
     Dates: start: 20110801
  11. HIZENTRA [Suspect]
  12. ALLEGRA [Concomitant]
  13. METOPROLOL TARTRATE [Concomitant]
  14. PLAVIX [Concomitant]
  15. ASPIRIN [Concomitant]
  16. LORTAB (LORTAB /01744401/) [Concomitant]
  17. PULMICORT [Concomitant]
  18. CLONAZEPAM [Concomitant]
  19. HIZENTRA [Suspect]
  20. OMEPRAZOLE [Concomitant]
  21. ACIDOPHILUS LACTOBACILLUS (LACTOBACILLUS ACIDOPHILUS) [Concomitant]
  22. ALBUTEROL [Concomitant]
  23. PROTONIX [Concomitant]

REACTIONS (2)
  - RESPIRATORY TRACT INFECTION [None]
  - PNEUMONIA [None]
